FAERS Safety Report 4337166-8 (Version None)
Quarter: 2004Q1

REPORT INFORMATION
  Report Type: 
  Country: None (occurrence: None)
  Receive Date: 20040329
  Receipt Date: 20040217
  Transmission Date: 20041129
  Serious: No
  Sender: FDA-Public Use
  Company Number: USA040259571

PATIENT
  Age: 5 Year
  Sex: Female
  Weight: 15 kg

DRUGS (5)
  1. STRATTERA [Suspect]
     Indication: ATTENTION DEFICIT/HYPERACTIVITY DISORDER
     Dosage: 10 MG/DAY
     Dates: start: 20040101
  2. ZANAC (RANITIDINE HYDROCHLORIDE) [Concomitant]
  3. SINGULAIR [Concomitant]
  4. XOPENEX [Concomitant]
  5. PULMICORT [Concomitant]

REACTIONS (5)
  - CHANGE OF BOWEL HABIT [None]
  - DECREASED APPETITE [None]
  - DRUG INEFFECTIVE [None]
  - SOCIAL AVOIDANT BEHAVIOUR [None]
  - SOMNOLENCE [None]
